FAERS Safety Report 19097490 (Version 3)
Quarter: 2021Q2

REPORT INFORMATION
  Report Type: Spontaneous
  Country: BR (occurrence: BR)
  Receive Date: 20210406
  Receipt Date: 20210430
  Transmission Date: 20210717
  Serious: Yes (Other)
  Sender: FDA-Public Use
  Company Number: BR-SA-2021SA101561

PATIENT
  Age: 47 Year
  Sex: Female
  Weight: 72 kg

DRUGS (1)
  1. CLEXANE [Suspect]
     Active Substance: ENOXAPARIN SODIUM
     Dosage: 1 DF, QD
     Route: 058
     Dates: start: 20210203, end: 20210211

REACTIONS (8)
  - Blister [Unknown]
  - Dermatitis bullous [Unknown]
  - Urticaria [Recovering/Resolving]
  - Menstrual disorder [Unknown]
  - Intermenstrual bleeding [Not Recovered/Not Resolved]
  - Haemorrhage [Unknown]
  - Intermenstrual bleeding [Not Recovered/Not Resolved]
  - Skin discomfort [Unknown]

NARRATIVE: CASE EVENT DATE: 20210211
